FAERS Safety Report 6890219-2 (Version None)
Quarter: 2010Q3

REPORT INFORMATION
  Report Type: 
  Country: None (occurrence: None)
  Receive Date: 20100730
  Receipt Date: 20080911
  Transmission Date: 20110219
  Serious: No
  Sender: FDA-Public Use
  Company Number: US-PFIZER INC-2008076667

PATIENT
  Sex: Male
  Weight: 55.454 kg

DRUGS (1)
  1. LIPITOR [Suspect]
     Indication: BLOOD CHOLESTEROL INCREASED
     Dates: start: 20080909

REACTIONS (4)
  - ASTHENIA [None]
  - DYSPEPSIA [None]
  - INFLUENZA LIKE ILLNESS [None]
  - OROPHARYNGEAL PAIN [None]
